FAERS Safety Report 8818640 (Version 1)
Quarter: 2012Q4

REPORT INFORMATION
  Report Type: Report from Study
  Country: US (occurrence: US)
  Receive Date: 20121001
  Receipt Date: 20121001
  Transmission Date: 20130627
  Serious: Yes (Hospitalization)
  Sender: FDA-Public Use
  Company Number: PHHO2012US013887

PATIENT
  Age: 36 Year
  Sex: Female
  Weight: 84.1 kg

DRUGS (10)
  1. ZOLEDRONATE [Suspect]
     Indication: BREAST CANCER METASTATIC
     Dosage: 3 mg, 3-4 weeks
     Dates: start: 20100316, end: 20120813
  2. BIOTIN [Concomitant]
  3. AROMASIN [Concomitant]
  4. LORTAB [Concomitant]
  5. IRON W/VITAMINS NOS [Concomitant]
  6. SYNTHROID [Concomitant]
  7. ALEVE [Concomitant]
  8. MULTIVITAMINS [Concomitant]
  9. ZOFRAN [Concomitant]
  10. ZOLOFT [Concomitant]

REACTIONS (11)
  - Bone marrow disorder [Recovering/Resolving]
  - Anaemia [Recovering/Resolving]
  - Thrombocytopenia [Recovering/Resolving]
  - Sepsis [Recovering/Resolving]
  - Hypercalcaemia [Recovering/Resolving]
  - Metastases to central nervous system [Recovering/Resolving]
  - Metastases to meninges [Recovering/Resolving]
  - Vision blurred [Recovering/Resolving]
  - Dizziness [Recovering/Resolving]
  - Renal failure acute [Recovering/Resolving]
  - Blood creatinine increased [Recovering/Resolving]
